FAERS Safety Report 21168956 (Version 11)
Quarter: 2022Q4

REPORT INFORMATION
  Report Type: Spontaneous
  Country: JP (occurrence: JP)
  Receive Date: 20220803
  Receipt Date: 20221213
  Transmission Date: 20230112
  Serious: Yes (Hospitalization, Other)
  Sender: FDA-Public Use
  Company Number: JP-NOVARTISPH-NVSJ2022JP095420

PATIENT
  Age: 16 Month
  Sex: Male
  Weight: 11 kg

DRUGS (20)
  1. ZOLGENSMA [Suspect]
     Active Substance: ONASEMNOGENE ABEPARVOVEC-XIOI
     Indication: Spinal muscular atrophy
     Dosage: UNK
     Route: 041
     Dates: start: 20220525, end: 20220525
  2. AMLODIPINE [Suspect]
     Active Substance: AMLODIPINE BESYLATE
     Indication: Blood pressure management
     Dosage: 5 MG, QD
     Route: 048
     Dates: start: 20220603
  3. AMLODIPINE [Suspect]
     Active Substance: AMLODIPINE BESYLATE
     Indication: Thrombotic microangiopathy
  4. NITROPRUSSIDE [Suspect]
     Active Substance: NITROPRUSSIDE
     Indication: Blood pressure management
     Dosage: UNK
     Route: 065
     Dates: start: 20220601, end: 20220603
  5. NITROPRUSSIDE [Suspect]
     Active Substance: NITROPRUSSIDE
     Indication: Thrombotic microangiopathy
  6. METHYLDOPA [Suspect]
     Active Substance: METHYLDOPA
     Indication: Blood pressure management
     Dosage: 100 MG, TID
     Route: 048
     Dates: start: 20220609
  7. METHYLDOPA [Suspect]
     Active Substance: METHYLDOPA
     Indication: Thrombotic microangiopathy
  8. PREDNISOLONE [Concomitant]
     Active Substance: PREDNISOLONE
     Indication: Product used for unknown indication
     Dosage: 0.5 MG/KG, BID
     Route: 048
     Dates: start: 20220524, end: 20220528
  9. PREDNISOLONE [Concomitant]
     Active Substance: PREDNISOLONE
     Dosage: 1 MG/KG, BID
     Route: 048
     Dates: start: 20220529, end: 20220531
  10. PREDNISOLONE [Concomitant]
     Active Substance: PREDNISOLONE
     Dosage: 2 MG/KG
     Route: 042
     Dates: start: 20220601, end: 20220606
  11. PREDNISOLONE [Concomitant]
     Active Substance: PREDNISOLONE
     Dosage: 1.5 MG/KG
     Route: 042
     Dates: start: 20220607, end: 20220608
  12. PREDNISOLONE [Concomitant]
     Active Substance: PREDNISOLONE
     Dosage: 1.5 MG/KG
     Route: 048
     Dates: start: 20220609, end: 20220612
  13. PREDNISOLONE [Concomitant]
     Active Substance: PREDNISOLONE
     Dosage: 1 MG/KG
     Route: 048
     Dates: start: 20220613, end: 20220624
  14. PREDNISOLONE [Concomitant]
     Active Substance: PREDNISOLONE
     Dosage: 0.5 MG/KG
     Route: 048
     Dates: start: 20220625, end: 20220705
  15. PREDNISOLONE [Concomitant]
     Active Substance: PREDNISOLONE
     Dosage: 0.25 MG/KG
     Route: 048
     Dates: start: 20220706, end: 20220720
  16. PREDNISOLONE [Concomitant]
     Active Substance: PREDNISOLONE
     Dosage: 1 MG/KG
     Route: 048
     Dates: start: 20220810, end: 20220830
  17. PREDNISOLONE [Concomitant]
     Active Substance: PREDNISOLONE
     Dosage: 0.75 MG/KG
     Route: 048
     Dates: start: 20220831, end: 20220906
  18. PREDNISOLONE [Concomitant]
     Active Substance: PREDNISOLONE
     Dosage: 0.5 MG/KG
     Route: 048
     Dates: start: 20220907, end: 20220913
  19. PREDNISOLONE [Concomitant]
     Active Substance: PREDNISOLONE
     Dosage: 0.25 MG/KG
     Route: 048
     Dates: start: 20220914, end: 20220921
  20. FAMOTIDINE [Concomitant]
     Active Substance: FAMOTIDINE
     Indication: Product used for unknown indication
     Dosage: 0.5 MG/KG, BID
     Route: 065
     Dates: start: 20220525

REACTIONS (29)
  - Thrombotic microangiopathy [Recovered/Resolved]
  - Atypical haemolytic uraemic syndrome [Unknown]
  - Platelet count decreased [Unknown]
  - Oliguria [Unknown]
  - Renal impairment [Unknown]
  - Haemolysis [Unknown]
  - Haemoglobinuria [Unknown]
  - Myoglobinuria [Unknown]
  - Haematuria [Recovering/Resolving]
  - Pyrexia [Recovered/Resolved]
  - Vomiting [Recovered/Resolved]
  - Acute kidney injury [Recovering/Resolving]
  - Fluid retention [Unknown]
  - Hypertension [Unknown]
  - Oedema peripheral [Unknown]
  - Pleural effusion [Recovering/Resolving]
  - Anaemia [Recovered/Resolved]
  - Hepatic function abnormal [Unknown]
  - Bradycardia [Unknown]
  - Syncope [Recovered/Resolved]
  - Presyncope [Unknown]
  - Arrhythmia [Unknown]
  - Hepatic enzyme increased [Recovered/Resolved]
  - Aspartate aminotransferase increased [Unknown]
  - Mood altered [Recovering/Resolving]
  - Decreased appetite [Recovering/Resolving]
  - Faeces soft [Unknown]
  - Toxicity to various agents [Unknown]
  - Acidosis [Unknown]

NARRATIVE: CASE EVENT DATE: 20220526
